FAERS Safety Report 17797323 (Version 1)
Quarter: 2020Q2

REPORT INFORMATION
  Report Type: Spontaneous
  Country: FR (occurrence: FR)
  Receive Date: 20200518
  Receipt Date: 20200518
  Transmission Date: 20200714
  Serious: Yes (Hospitalization)
  Sender: FDA-Public Use
  Company Number: NVSC2020FR132336

PATIENT
  Age: 43 Year
  Sex: Male
  Weight: 80 kg

DRUGS (1)
  1. CARBAMAZEPINE. [Suspect]
     Active Substance: CARBAMAZEPINE
     Indication: BIPOLAR DISORDER
     Dosage: 800 MG, QD
     Route: 048
     Dates: start: 1999, end: 2020

REACTIONS (2)
  - Lung disorder [Not Recovered/Not Resolved]
  - Pulmonary eosinophilia [Not Recovered/Not Resolved]

NARRATIVE: CASE EVENT DATE: 201912
